FAERS Safety Report 8217534-4 (Version None)
Quarter: 2012Q1

REPORT INFORMATION
  Report Type: 
  Country: None (occurrence: None)
  Receive Date: 20120314
  Receipt Date: 20120305
  Transmission Date: 20120608
  Serious: Yes (Other)
  Sender: FDA-Public Use
  Company Number: AUR-APL-2011-06241

PATIENT
  Age: 67 Year
  Sex: Female

DRUGS (4)
  1. PHENAZOPYRIDINE (PHENAZOPYRIDINE) [Concomitant]
  2. CEFUROXIME [Concomitant]
  3. WARFARIN SODIUM [Suspect]
     Indication: ANTICOAGULANT THERAPY
     Dates: start: 20020101
  4. CEFTRIAXONE [Suspect]
     Indication: URINARY TRACT INFECTION
     Dosage: (1 GM),INTRAMUSCULAR
     Route: 030

REACTIONS (1)
  - INTERNATIONAL NORMALISED RATIO INCREASED [None]
